FAERS Safety Report 26013868 (Version 1)
Quarter: 2025Q4

REPORT INFORMATION
  Report Type: Spontaneous
  Country: CA (occurrence: CA)
  Receive Date: 20251108
  Receipt Date: 20251108
  Transmission Date: 20260118
  Serious: Yes (Death, Hospitalization, Other)
  Sender: AUROBINDO
  Company Number: CA-AUROBINDO-AUR-APL-2025-056454

PATIENT
  Age: 88 Year
  Sex: Female

DRUGS (7)
  1. PREGABALIN [Suspect]
     Active Substance: PREGABALIN
     Indication: Product used for unknown indication
     Dosage: 2 DOSAGE FORM, ONCE A DAY
     Route: 048
  2. MEPOLIZUMAB [Suspect]
     Active Substance: MEPOLIZUMAB
     Indication: Asthma
     Dosage: 100 MILLIGRAM, 1 EVERY 4 WEEKS
     Route: 058
  3. PREGABALIN [Suspect]
     Active Substance: PREGABALIN
     Indication: Product used for unknown indication
     Dosage: 2 DOSAGE FORM, ONCE A DAY
     Route: 048
  4. COVID-19 vaccine [Concomitant]
     Indication: Product used for unknown indication
     Dosage: UNK
     Route: 065
  5. VENTOLIN [Concomitant]
     Active Substance: ALBUTEROL SULFATE
     Indication: Product used for unknown indication
     Dosage: 2 DOSAGE FORM
  6. VENTOLIN [Concomitant]
     Active Substance: ALBUTEROL SULFATE
     Dosage: 4 DOSAGE FORM
  7. ZENHALE [Concomitant]
     Active Substance: FORMOTEROL FUMARATE\MOMETASONE FUROATE
     Indication: Product used for unknown indication
     Dosage: 2 DOSAGE FORM

REACTIONS (34)
  - Wound haemorrhage [Fatal]
  - Arthropathy [Fatal]
  - Asthenia [Fatal]
  - Asthma [Fatal]
  - Blood pressure increased [Fatal]
  - Blood pressure systolic increased [Fatal]
  - Confusional state [Fatal]
  - Contusion [Fatal]
  - Cough [Fatal]
  - Death [Fatal]
  - Dyspnoea [Fatal]
  - Fall [Fatal]
  - Feeling hot [Fatal]
  - Gait inability [Fatal]
  - General physical health deterioration [Fatal]
  - Head injury [Fatal]
  - Insomnia [Fatal]
  - Joint injury [Fatal]
  - Limb injury [Fatal]
  - Loss of consciousness [Fatal]
  - Lung disorder [Fatal]
  - Muscle spasms [Fatal]
  - Nocturia [Fatal]
  - Pallor [Fatal]
  - Productive cough [Fatal]
  - Pulmonary oedema [Fatal]
  - Respiratory rate increased [Fatal]
  - Scratch [Fatal]
  - Skin lesion [Fatal]
  - Sleep disorder [Fatal]
  - Speech disorder [Fatal]
  - Vital functions abnormal [Fatal]
  - Wheezing [Fatal]
  - Inappropriate schedule of product administration [Fatal]
